FAERS Safety Report 6760799-6 (Version None)
Quarter: 2010Q2

REPORT INFORMATION
  Report Type: 
  Country: None (occurrence: None)
  Receive Date: 20100607
  Receipt Date: 20100607
  Transmission Date: 20101027
  Serious: Yes (Other)
  Sender: FDA-Public Use
  Company Number: None

PATIENT
  Age: 68 Year
  Sex: Female

DRUGS (1)
  1. DICYCLOMINE [Suspect]
     Dosage: 10 MG QID PO
     Route: 048
     Dates: start: 20100518, end: 20100520

REACTIONS (3)
  - ACTIVITIES OF DAILY LIVING IMPAIRED [None]
  - MENTAL STATUS CHANGES [None]
  - MUSCLE SPASMS [None]
